FAERS Safety Report 7920647-5 (Version None)
Quarter: 2011Q4

REPORT INFORMATION
  Report Type: 
  Country: None (occurrence: None)
  Receive Date: 20111117
  Receipt Date: 20111109
  Transmission Date: 20120403
  Serious: Yes (Other)
  Sender: FDA-Public Use
  Company Number: US-AMGEN-USASP2011052806

PATIENT
  Age: 86 Year
  Sex: Female
  Weight: 47.619 kg

DRUGS (8)
  1. AMOXICILLIN                        /00249602/ [Concomitant]
     Dosage: UNK
     Dates: end: 20110924
  2. AMLODIPINE [Concomitant]
     Dosage: UNK UNK, QD
  3. PROLIA [Suspect]
     Indication: OSTEOPOROSIS POSTMENOPAUSAL
     Dosage: 60 MG, Q6MO
     Route: 058
     Dates: start: 20110922, end: 20110927
  4. PLAVIX [Concomitant]
     Dosage: 300 MG, UNK
  5. ASPIRIN [Concomitant]
     Dosage: 325 MG, QD
  6. LISINOPRIL [Concomitant]
     Dosage: UNK UNK, QD
  7. LISINOPRIL AND HYDROCHLOROTHIAZIDE [Concomitant]
  8. AMLODIPINE BESYLATE [Concomitant]
     Dosage: 10 MG, UNK

REACTIONS (7)
  - SKIN EXFOLIATION [None]
  - PARAESTHESIA [None]
  - PAIN OF SKIN [None]
  - RASH ERYTHEMATOUS [None]
  - RASH MACULO-PAPULAR [None]
  - HYPOAESTHESIA [None]
  - XEROSIS [None]
